FAERS Safety Report 9942934 (Version 1)
Quarter: 2014Q1

REPORT INFORMATION
  Report Type: Report from Study
  Country: US (occurrence: US)
  Receive Date: 20140303
  Receipt Date: 20140303
  Transmission Date: 20141002
  Serious: No
  Sender: FDA-Public Use
  Company Number: US-ABBVIE-13P-163-1044592-00

PATIENT
  Sex: Male
  Weight: 94.43 kg

DRUGS (7)
  1. HUMIRA [Suspect]
     Indication: PSORIASIS
     Dates: start: 201204
  2. PEG-INTRON [Concomitant]
     Indication: HEPATITIS C
  3. RIBOVIRIN [Concomitant]
     Indication: HEPATITIS C
  4. VICTRELIS [Concomitant]
     Indication: HEPATITIS C
  5. IBUPROFEN [Concomitant]
     Indication: PAIN
  6. ROBAXIN [Concomitant]
     Indication: MYALGIA
  7. OXYCODONE [Concomitant]
     Indication: PAIN

REACTIONS (10)
  - Weight decreased [Not Recovered/Not Resolved]
  - Dysgeusia [Not Recovered/Not Resolved]
  - Diarrhoea [Not Recovered/Not Resolved]
  - Irritability [Not Recovered/Not Resolved]
  - Crying [Not Recovered/Not Resolved]
  - Dizziness [Not Recovered/Not Resolved]
  - Dyspnoea [Not Recovered/Not Resolved]
  - Disturbance in attention [Not Recovered/Not Resolved]
  - Fatigue [Not Recovered/Not Resolved]
  - Nausea [Not Recovered/Not Resolved]
